FAERS Safety Report 7510195-9 (Version None)
Quarter: 2011Q2

REPORT INFORMATION
  Report Type: 
  Country: None (occurrence: None)
  Receive Date: 20110527
  Receipt Date: 20110526
  Transmission Date: 20111010
  Serious: Yes (Life-Threatening, Hospitalization, Other)
  Sender: FDA-Public Use
  Company Number: US-B.I. PHARMACEUTICALS,INC./RIDGEFIELD-2011-BP-12622BP

PATIENT
  Sex: Male

DRUGS (12)
  1. ZANTAC [Concomitant]
  2. COREG [Concomitant]
  3. LASIX [Concomitant]
  4. NEURONTIN [Concomitant]
  5. ZESTRIL [Concomitant]
  6. PRADAXA [Suspect]
     Indication: ATRIAL FIBRILLATION
     Dosage: 300 MG
     Route: 048
     Dates: start: 20110117, end: 20110509
  7. XANAX [Concomitant]
  8. IMITREX [Concomitant]
  9. ULTRAM [Concomitant]
  10. ALLOPURINOL [Concomitant]
  11. NEXIUM [Concomitant]
  12. LOPID [Concomitant]

REACTIONS (3)
  - SPLENIC EMBOLISM [None]
  - SPLENIC INFARCTION [None]
  - ABDOMINAL PAIN [None]
